FAERS Safety Report 4594092-7 (Version None)
Quarter: 2005Q1

REPORT INFORMATION
  Report Type: 
  Country: None (occurrence: None)
  Receive Date: 20050301
  Receipt Date: 20040708
  Transmission Date: 20050727
  Serious: Yes (Death, Hospitalization, Other)
  Sender: FDA-Public Use
  Company Number: DE-BRISTOL-MYERS SQUIBB COMPANY-12636171

PATIENT
  Age: 55 Year
  Sex: Female
  Weight: 92 kg

DRUGS (6)
  1. CISPLATIN [Suspect]
     Indication: NON-SMALL CELL LUNG CANCER
     Dosage: C1: 80 MG/M2 01-APR-04; C2: 60 MG/M2 26-APR AND 27-APR-04
     Route: 042
     Dates: start: 20040401, end: 20040427
  2. TAXOL [Suspect]
     Indication: NON-SMALL CELL LUNG CANCER
     Dosage: C1: 200 MG/M2 01-APR-04; C2: 175 MG/M2 26-APR AND 27-APR-04
     Route: 042
     Dates: start: 20040401, end: 20040427
  3. NEURONTIN [Concomitant]
     Indication: POLYNEUROPATHY
     Dates: start: 20040527
  4. METOCLOPRAMIDE [Concomitant]
     Indication: NAUSEA
  5. FORTECORTIN [Concomitant]
     Indication: METASTASES TO CENTRAL NERVOUS SYSTEM
     Dates: start: 20040527, end: 20040603
  6. FARLUTAL [Concomitant]
     Indication: ANOREXIA
     Dates: start: 20040527

REACTIONS (7)
  - ANOREXIA [None]
  - CANDIDIASIS [None]
  - DEATH [None]
  - LEUKOPENIA [None]
  - NAUSEA [None]
  - POLYNEUROPATHY [None]
  - TINNITUS [None]
